FAERS Safety Report 5553742-9 (Version None)
Quarter: 2007Q4

REPORT INFORMATION
  Report Type: 
  Country: None (occurrence: None)
  Receive Date: 20071213
  Receipt Date: 20071129
  Transmission Date: 20080405
  Serious: Yes (Hospitalization, Disabling, Other)
  Sender: FDA-Public Use
  Company Number: TR-ELI_LILLY_AND_COMPANY-TR200712001550

PATIENT
  Age: 68 Year
  Sex: Female
  Weight: 65 kg

DRUGS (3)
  1. HUMULIN 70/30 [Suspect]
     Dosage: 8 UNITS MORNING AND EVENING
     Route: 058
     Dates: start: 20070901, end: 20071101
  2. HUMULIN 70/30 [Suspect]
     Dosage: 8 U, EACH EVENING
     Route: 058
     Dates: start: 20070901, end: 20071101
  3. ANTIHYPERTENSIVES [Concomitant]
     Indication: HYPERTENSION
     Dosage: UNK, DAILY (1/D)
     Route: 065

REACTIONS (7)
  - BLINDNESS [None]
  - BLOOD GLUCOSE INCREASED [None]
  - EYE OPERATION [None]
  - EYE PAIN [None]
  - FEELING ABNORMAL [None]
  - HYPERHIDROSIS [None]
  - TREMOR [None]
